FAERS Safety Report 21734595 (Version 1)
Quarter: 2022Q4

REPORT INFORMATION
  Report Type: Spontaneous
  Country: CL (occurrence: CL)
  Receive Date: 20221215
  Receipt Date: 20221215
  Transmission Date: 20230112
  Serious: Yes (Death, Hospitalization, Other)
  Sender: FDA-Public Use
  Company Number: CL-BoehringerIngelheim-2022-BI-206955

PATIENT
  Age: 57 Year
  Sex: Female

DRUGS (2)
  1. AFATINIB [Suspect]
     Active Substance: AFATINIB
     Indication: Squamous cell carcinoma of lung
  2. AFATINIB [Suspect]
     Active Substance: AFATINIB
     Indication: EGFR gene mutation

REACTIONS (8)
  - Malignant neoplasm progression [Fatal]
  - Mediastinal mass [Fatal]
  - Rash [Recovering/Resolving]
  - Vena cava thrombosis [Unknown]
  - Stress cardiomyopathy [Recovered/Resolved]
  - Therapy partial responder [Unknown]
  - Rash [Unknown]
  - Oedema peripheral [Unknown]
